FAERS Safety Report 13628039 (Version 1)
Quarter: 2017Q2

REPORT INFORMATION
  Report Type: Spontaneous
  Country: US (occurrence: US)
  Receive Date: 20170608
  Receipt Date: 20170608
  Transmission Date: 20170830
  Serious: Yes (Other)
  Sender: FDA-Public Use
  Company Number: None

PATIENT
  Age: 55 Year
  Sex: Male
  Weight: 137.1 kg

DRUGS (1)
  1. TACROLIMUS 1MG/0.5MG [Suspect]
     Active Substance: TACROLIMUS
     Indication: RENAL TRANSPLANT
     Dosage: 1MG/0.5 MG
     Route: 048
     Dates: start: 20150923, end: 20151217

REACTIONS (1)
  - Drug level changed [None]

NARRATIVE: CASE EVENT DATE: 20150923
